FAERS Safety Report 13921853 (Version 3)
Quarter: 2017Q4

REPORT INFORMATION
  Report Type: Spontaneous
  Country: JP (occurrence: JP)
  Receive Date: 20170830
  Receipt Date: 20171023
  Transmission Date: 20180320
  Serious: Yes (Death)
  Sender: FDA-Public Use
  Company Number: JP-CELGENEUS-JPN-20170807803

PATIENT
  Age: 68 Year
  Sex: Male
  Weight: 43 kg

DRUGS (5)
  1. GEMCITABINE HYDROCHLORIDE. [Suspect]
     Active Substance: GEMCITABINE HYDROCHLORIDE
     Dosage: 1420 MILLIGRAM
     Route: 041
     Dates: start: 20150527
  2. ABRAXANE [Suspect]
     Active Substance: PACLITAXEL
     Indication: PANCREATIC CARCINOMA METASTATIC
     Dosage: 178 MILLIGRAM
     Route: 041
     Dates: start: 20150306, end: 20150616
  3. ADRENAL HORMONE PREPARATIONS [Concomitant]
     Active Substance: UNSPECIFIED INGREDIENT
     Indication: ACQUIRED HAEMOPHILIA
     Route: 048
  4. ABRAXANE [Suspect]
     Active Substance: PACLITAXEL
     Dosage: 178 MILLIGRAM
     Route: 041
     Dates: start: 20150527
  5. GEMCITABINE HYDROCHLORIDE. [Suspect]
     Active Substance: GEMCITABINE HYDROCHLORIDE
     Indication: PANCREATIC CARCINOMA METASTATIC
     Dosage: 1420 MILLIGRAM
     Route: 041
     Dates: start: 20150306, end: 20150616

REACTIONS (1)
  - Interstitial lung disease [Fatal]

NARRATIVE: CASE EVENT DATE: 20150616
